FAERS Safety Report 25826946 (Version 1)
Quarter: 2025Q3

REPORT INFORMATION
  Report Type: Spontaneous
  Country: EU (occurrence: EU)
  Receive Date: 20250920
  Receipt Date: 20250920
  Transmission Date: 20251021
  Serious: Yes (Life-Threatening, Hospitalization, Other)
  Sender: ABBVIE
  Company Number: None

PATIENT
  Age: 50 Year
  Sex: Female

DRUGS (1)
  1. BOTULINUM TOXIN TYPE A [Suspect]
     Active Substance: BOTULINUM TOXIN TYPE A
     Indication: Hyperhidrosis
     Route: 023
     Dates: start: 20250806, end: 20250806

REACTIONS (9)
  - Dizziness [Recovering/Resolving]
  - Product use in unapproved therapeutic environment [Recovering/Resolving]
  - Muscular weakness [Recovering/Resolving]
  - Myasthenic syndrome [Recovering/Resolving]
  - Immune-mediated myasthenia gravis [Recovered/Resolved]
  - Eyelid ptosis [Recovering/Resolving]
  - Dyspnoea [Recovering/Resolving]
  - Diplopia [Recovering/Resolving]
  - Dysphagia [Recovering/Resolving]

NARRATIVE: CASE EVENT DATE: 20250808
